FAERS Safety Report 18437545 (Version 1)
Quarter: 2020Q4

REPORT INFORMATION
  Report Type: Spontaneous
  Country: US (occurrence: US)
  Receive Date: 20201028
  Receipt Date: 20201028
  Transmission Date: 20210114
  Serious: No
  Sender: FDA-Public Use
  Company Number: US-ABBVIE-20K-163-3441944-00

PATIENT
  Age: 66 Year
  Sex: Female

DRUGS (1)
  1. RISANKIZUMAB [Suspect]
     Active Substance: RISANKIZUMAB
     Indication: PSORIASIS
     Route: 058
     Dates: start: 201908, end: 202006

REACTIONS (2)
  - Headache [Not Recovered/Not Resolved]
  - Lichen planus [Not Recovered/Not Resolved]
